FAERS Safety Report 9626114 (Version 1)
Quarter: 2013Q4

REPORT INFORMATION
  Report Type: Spontaneous
  Country: NL (occurrence: NL)
  Receive Date: 20131016
  Receipt Date: 20131016
  Transmission Date: 20140711
  Serious: Yes (Hospitalization)
  Sender: FDA-Public Use
  Company Number: NL-ROXANE LABORATORIES, INC.-2013-RO-01684RO

PATIENT
  Age: 74 Year
  Sex: Female

DRUGS (3)
  1. METHOTREXATE [Suspect]
     Indication: NECROTISING SCLERITIS
     Route: 048
     Dates: start: 2010
  2. PREDNISONE [Suspect]
     Indication: NECROTISING SCLERITIS
     Route: 048
     Dates: start: 2010
  3. ADALIMUMAB [Suspect]
     Indication: NECROTISING SCLERITIS
     Route: 058
     Dates: start: 201104

REACTIONS (2)
  - Cholestasis [Recovered/Resolved]
  - Histoplasmosis disseminated [Recovered/Resolved]
